FAERS Safety Report 18498944 (Version 1)
Quarter: 2020Q4

REPORT INFORMATION
  Report Type: Report from Study
  Country: US (occurrence: US)
  Receive Date: 20201112
  Receipt Date: 20201112
  Transmission Date: 20210114
  Serious: No
  Sender: FDA-Public Use
  Company Number: US-INCYTE CORPORATION-2020IN009790

PATIENT

DRUGS (3)
  1. JAKAFI [Suspect]
     Active Substance: RUXOLITINIB
     Dosage: 2 MILLIGRAM, QD
     Route: 065
  2. JAKAFI [Suspect]
     Active Substance: RUXOLITINIB
     Indication: POLYCYTHAEMIA VERA
     Dosage: 2 MILLIGRAM, QD
     Route: 065
  3. JAKAFI [Suspect]
     Active Substance: RUXOLITINIB
     Dosage: 3 MILLIGRAM, BID
     Route: 065

REACTIONS (11)
  - White blood cell count abnormal [Unknown]
  - Hyperhidrosis [Unknown]
  - Decreased activity [Unknown]
  - Wrong technique in product usage process [Unknown]
  - Haematocrit abnormal [Unknown]
  - Disturbance in attention [Unknown]
  - Night sweats [Unknown]
  - Haemoglobin abnormal [Unknown]
  - Platelet count abnormal [Unknown]
  - Fatigue [Unknown]
  - Pyrexia [Unknown]
